FAERS Safety Report 8780212 (Version 1)
Quarter: 2012Q4

REPORT INFORMATION
  Report Type: Spontaneous
  Country: US (occurrence: None)
  Receive Date: 20120904
  Receipt Date: 20120904
  Transmission Date: 20130627
  Serious: No
  Sender: FDA-Public Use
  Company Number: None

PATIENT
  Sex: Female
  Weight: 63.05 kg

DRUGS (2)
  1. AMPHETAMINE [Suspect]
     Indication: DRUG INEFFECTIVE
     Dosage: 2/9/2012-2/8/2012
     Dates: start: 20120209
  2. AMPHETAMINE [Suspect]
     Indication: JITTERINESS
     Dosage: 2/9/2012-2/8/2012
     Dates: start: 20120209

REACTIONS (2)
  - Drug ineffective [None]
  - Feeling jittery [None]
